FAERS Safety Report 23330498 (Version 2)
Quarter: 2024Q1

REPORT INFORMATION
  Report Type: Spontaneous
  Country: US (occurrence: US)
  Receive Date: 20231222
  Receipt Date: 20240125
  Transmission Date: 20240410
  Serious: No
  Sender: FDA-Public Use
  Company Number: US-SA-SAC20231215000988

PATIENT
  Age: 64 Year
  Sex: Female

DRUGS (5)
  1. DUPIXENT [Suspect]
     Active Substance: DUPILUMAB
     Indication: Dermatitis atopic
     Dosage: 300 MG, QOW
     Route: 058
     Dates: start: 2023
  2. LEXAPRO [Concomitant]
     Active Substance: ESCITALOPRAM OXALATE
  3. PRIMIDONE [Concomitant]
     Active Substance: PRIMIDONE
  4. SIMVASTATIN [Concomitant]
     Active Substance: SIMVASTATIN
  5. XANAX [Concomitant]
     Active Substance: ALPRAZOLAM

REACTIONS (5)
  - Peripheral swelling [Unknown]
  - Skin burning sensation [Unknown]
  - Erythema [Unknown]
  - Pruritus [Unknown]
  - Sinusitis [Unknown]

NARRATIVE: CASE EVENT DATE: 20231212
